FAERS Safety Report 8433221-1 (Version None)
Quarter: 2012Q2

REPORT INFORMATION
  Report Type: 
  Country: None (occurrence: None)
  Receive Date: 20120613
  Receipt Date: 20120601
  Transmission Date: 20120825
  Serious: Yes (Hospitalization)
  Sender: FDA-Public Use
  Company Number: ES-VIIV HEALTHCARE LIMITED-B0807561A

PATIENT
  Sex: Male
  Weight: 85 kg

DRUGS (3)
  1. CALCIFEDIOL [Concomitant]
     Indication: VITAMIN D DEFICIENCY
     Dosage: 266MG WEEKLY
     Route: 048
     Dates: start: 20120207
  2. MARAVIROC [Suspect]
     Indication: HIV INFECTION
  3. CANDESARTAN CILEXETIL AND HYDROCHLOROTHIAZIDE [Concomitant]
     Indication: HYPERTENSION
     Route: 048
     Dates: start: 20120411

REACTIONS (2)
  - HEPATIC FAILURE [None]
  - RENAL FAILURE [None]
